FAERS Safety Report 5266307-3 (Version None)
Quarter: 2007Q1

REPORT INFORMATION
  Report Type: 
  Country: None (occurrence: None)
  Receive Date: 20070315
  Receipt Date: 20070307
  Transmission Date: 20070707
  Serious: Yes (Other)
  Sender: FDA-Public Use
  Company Number: DE-ROCHE-486383

PATIENT

DRUGS (1)
  1. BONVIVA [Suspect]
     Indication: OSTEOPOROSIS POSTMENOPAUSAL
     Route: 048

REACTIONS (1)
  - GASTROINTESTINAL DISORDER [None]
